FAERS Safety Report 9017628 (Version 1)
Quarter: 2013Q1

REPORT INFORMATION
  Report Type: Spontaneous
  Country: DE (occurrence: DE)
  Receive Date: 20130117
  Receipt Date: 20130117
  Transmission Date: 20140127
  Serious: Yes (Other)
  Sender: FDA-Public Use
  Company Number: DE-PFIZER INC-2013014423

PATIENT
  Age: 17 Year
  Sex: Male
  Weight: 85 kg

DRUGS (1)
  1. AZITHROMYCIN [Suspect]
     Indication: INFECTION
     Dosage: UNK
     Route: 048
     Dates: start: 2010, end: 2010

REACTIONS (1)
  - Eye swelling [Recovered/Resolved]
